FAERS Safety Report 8234155-8 (Version None)
Quarter: 2012Q1

REPORT INFORMATION
  Report Type: 
  Country: None (occurrence: None)
  Receive Date: 20120326
  Receipt Date: 20120320
  Transmission Date: 20120608
  Serious: Yes (Other)
  Sender: FDA-Public Use
  Company Number: IT-TEVA-329646ISR

PATIENT
  Sex: Female

DRUGS (1)
  1. EPIRUBICIN [Suspect]

REACTIONS (1)
  - HYPERTRANSAMINASAEMIA [None]
